FAERS Safety Report 7459433-1 (Version None)
Quarter: 2011Q2

REPORT INFORMATION
  Report Type: 
  Country: None (occurrence: None)
  Receive Date: 20110505
  Receipt Date: 20110426
  Transmission Date: 20111010
  Serious: Yes (Other)
  Sender: FDA-Public Use
  Company Number: US-US-EMD SERONO, INC.-234267J08USA

PATIENT
  Sex: Female
  Weight: 63 kg

DRUGS (3)
  1. METHADONE [Concomitant]
  2. FLEXERIL [Concomitant]
     Indication: MUSCLE SPASMS
  3. REBIF [Suspect]
     Indication: MULTIPLE SCLEROSIS
     Route: 058
     Dates: start: 20031017

REACTIONS (9)
  - CARDIAC FAILURE CONGESTIVE [None]
  - BRADYCARDIA [None]
  - DEPRESSION [None]
  - SOMNOLENCE [None]
  - MEMORY IMPAIRMENT [None]
  - DIZZINESS [None]
  - CARDIAC FLUTTER [None]
  - INJECTION SITE REACTION [None]
  - INFLUENZA LIKE ILLNESS [None]
